FAERS Safety Report 19258090 (Version 1)
Quarter: 2021Q2

REPORT INFORMATION
  Report Type: Spontaneous
  Country: US (occurrence: US)
  Receive Date: 20210514
  Receipt Date: 20210514
  Transmission Date: 20210717
  Serious: No
  Sender: FDA-Public Use
  Company Number: None

PATIENT
  Age: 48 Year
  Sex: Female
  Weight: 96 kg

DRUGS (4)
  1. ACETAMINOPHEN. [Concomitant]
     Active Substance: ACETAMINOPHEN
  2. HERCEPTIN [Suspect]
     Active Substance: TRASTUZUMAB
     Dates: end: 20210323
  3. TAXOL [Suspect]
     Active Substance: PACLITAXEL
     Dates: end: 20210407
  4. PERTUZUMAB. [Suspect]
     Active Substance: PERTUZUMAB
     Dates: end: 20210323

REACTIONS (1)
  - Alanine aminotransferase increased [None]

NARRATIVE: CASE EVENT DATE: 20210413
